FAERS Safety Report 10659788 (Version 2)
Quarter: 2015Q1

REPORT INFORMATION
  Report Type: Spontaneous
  Country: JP (occurrence: JP)
  Receive Date: 20141217
  Receipt Date: 20150313
  Transmission Date: 20150720
  Serious: Yes (Hospitalization, Other)
  Sender: FDA-Public Use
  Company Number: JP-PFIZER INC-2014340593

PATIENT
  Sex: Female

DRUGS (10)
  1. SOLANAX [Suspect]
     Active Substance: ALPRAZOLAM
     Indication: PSYCHOTIC DISORDER
     Dosage: 1 DF, 3X/DAY
     Route: 048
     Dates: start: 1997
  2. PROCATEROL HYDROCHLORIDE [Concomitant]
     Active Substance: PROCATEROL HYDROCHLORIDE
     Dosage: UNK
     Route: 048
  3. DOGMATYL [Suspect]
     Active Substance: SULPIRIDE
     Dosage: UNK
     Route: 065
  4. THEO-DUR [Concomitant]
     Active Substance: THEOPHYLLINE ANHYDROUS
     Dosage: UNK
     Route: 048
  5. HI Z [Concomitant]
     Dosage: UNK
     Route: 048
  6. BROMCOSAL [Concomitant]
     Dosage: UNK
     Route: 048
  7. LEXOTAN [Suspect]
     Active Substance: BROMAZEPAM
     Dosage: UNK
     Route: 048
  8. BUP-4 [Suspect]
     Active Substance: PROPIVERINE
     Dosage: UNK
     Route: 048
     Dates: start: 20030714
  9. ONON [Concomitant]
     Active Substance: PRANLUKAST
     Dosage: UNK
     Route: 048
  10. LITHIUM CARBONATE. [Concomitant]
     Active Substance: LITHIUM CARBONATE
     Dosage: UNK
     Route: 048

REACTIONS (8)
  - Road traffic accident [Unknown]
  - Optic neuropathy [Not Recovered/Not Resolved]
  - Nervous system disorder [Not Recovered/Not Resolved]
  - Asthenopia [Not Recovered/Not Resolved]
  - Anaemia [Unknown]
  - Accommodation disorder [Not Recovered/Not Resolved]
  - Vision blurred [Not Recovered/Not Resolved]
  - Visual field defect [Not Recovered/Not Resolved]

NARRATIVE: CASE EVENT DATE: 2002
